FAERS Safety Report 6290293-0 (Version None)
Quarter: 2009Q3

REPORT INFORMATION
  Report Type: 
  Country: None (occurrence: None)
  Receive Date: 20090729
  Receipt Date: 20090729
  Transmission Date: 20100115
  Serious: No
  Sender: FDA-Public Use
  Company Number: None

PATIENT
  Age: 30 Year
  Sex: Female
  Weight: 61.4 kg

DRUGS (8)
  1. ALBUMIN 5% (500ML) GRIFOLS [Suspect]
     Indication: BLOOD PRODUCT TRANSFUSION
     Dosage: ONCE, INTRAVENOUS
     Route: 042
     Dates: start: 20090721
  2. ENALAPRIL MALEATE [Concomitant]
  3. NEXIUM [Concomitant]
  4. LASIX [Concomitant]
  5. MYFORTIC [Concomitant]
  6. PREDNISONE TAB [Concomitant]
  7. PROGRAF [Concomitant]
  8. COLACE [Concomitant]

REACTIONS (4)
  - ABDOMINAL PAIN [None]
  - INFUSION RELATED REACTION [None]
  - MALAISE [None]
  - PARAESTHESIA [None]
